FAERS Safety Report 8253981-2 (Version None)
Quarter: 2012Q2

REPORT INFORMATION
  Report Type: 
  Country: None (occurrence: None)
  Receive Date: 20120402
  Receipt Date: 20120319
  Transmission Date: 20120825
  Serious: No
  Sender: FDA-Public Use
  Company Number: US-AMGEN-USASP2012015657

PATIENT
  Age: 56 Year
  Sex: Female

DRUGS (1)
  1. ENBREL [Suspect]
     Indication: RHEUMATOID ARTHRITIS
     Dosage: 50 MG, QWK
     Dates: start: 20120229, end: 20120307

REACTIONS (5)
  - SINUSITIS [None]
  - INCREASED UPPER AIRWAY SECRETION [None]
  - ASTHMA [None]
  - BACK PAIN [None]
  - PRODUCTIVE COUGH [None]
